FAERS Safety Report 16863428 (Version 1)
Quarter: 2019Q3

REPORT INFORMATION
  Report Type: Spontaneous
  Country: SV (occurrence: SV)
  Receive Date: 20190927
  Receipt Date: 20190927
  Transmission Date: 20191005
  Serious: Yes (Death)
  Sender: FDA-Public Use
  Company Number: SV-PFIZER INC-2019414906

PATIENT
  Age: 72 Year
  Sex: Male

DRUGS (2)
  1. ECALTA [Suspect]
     Active Substance: ANIDULAFUNGIN
     Dosage: 100 MG, 1X/DAY
  2. ECALTA [Suspect]
     Active Substance: ANIDULAFUNGIN
     Dosage: 200 MG, SINGLE

REACTIONS (1)
  - Death [Fatal]
